FAERS Safety Report 4461280-X (Version None)
Quarter: 2004Q3

REPORT INFORMATION
  Report Type: 
  Country: None (occurrence: None)
  Receive Date: 20040928
  Receipt Date: 20040830
  Transmission Date: 20050211
  Serious: Yes (Other)
  Sender: FDA-Public Use
  Company Number: US-GLAXOSMITHKLINE-A0523776A

PATIENT
  Age: 28 Year
  Sex: Female
  Weight: 62.3 kg

DRUGS (2)
  1. LAMICTAL [Suspect]
     Indication: CONVULSION
     Route: 048
     Dates: start: 20040101
  2. FOLIC ACID [Concomitant]
     Indication: VITAMIN SUPPLEMENTATION
     Dosage: 1MG PER DAY
     Route: 048
     Dates: start: 20030905

REACTIONS (2)
  - ABORTION SPONTANEOUS [None]
  - DRUG EXPOSURE DURING PREGNANCY [None]
